FAERS Safety Report 5730923-2 (Version None)
Quarter: 2008Q2

REPORT INFORMATION
  Report Type: 
  Country: None (occurrence: None)
  Receive Date: 20080507
  Receipt Date: 20080430
  Transmission Date: 20081010
  Serious: Yes (Other)
  Sender: FDA-Public Use
  Company Number: US-ASTRAZENECA-2008UW08976

PATIENT
  Age: 62 Year
  Sex: Female
  Weight: 88.5 kg

DRUGS (2)
  1. CRESTOR [Suspect]
     Indication: BLOOD CHOLESTEROL INCREASED
     Route: 048
     Dates: start: 20060101
  2. SYNTHROID [Concomitant]

REACTIONS (2)
  - BLOOD GLUCOSE INCREASED [None]
  - THYROID NEOPLASM [None]
